FAERS Safety Report 19812488 (Version 2)
Quarter: 2021Q3

REPORT INFORMATION
  Report Type: Report from Study
  Country: US (occurrence: US)
  Receive Date: 20210910
  Receipt Date: 20210914
  Transmission Date: 20211014
  Serious: Yes (Death, Other)
  Sender: FDA-Public Use
  Company Number: US-UNITED THERAPEUTICS-UNT-2021-017674

PATIENT
  Age: 69 Year
  Sex: Female

DRUGS (2)
  1. TREPROSTINIL SODIUM (INHALED) [Suspect]
     Active Substance: TREPROSTINIL SODIUM
     Dosage: 96 ?G, QID
  2. TREPROSTINIL SODIUM (INHALED) [Suspect]
     Active Substance: TREPROSTINIL SODIUM
     Indication: PULMONARY ARTERIAL HYPERTENSION
     Dosage: UNK
     Dates: start: 2020

REACTIONS (2)
  - Off label use [Unknown]
  - Death [Fatal]

NARRATIVE: CASE EVENT DATE: 20210831
